FAERS Safety Report 4912223-3 (Version None)
Quarter: 2006Q1

REPORT INFORMATION
  Report Type: 
  Country: None (occurrence: None)
  Receive Date: 20060215
  Receipt Date: 20051020
  Transmission Date: 20060701
  Serious: No
  Sender: FDA-Public Use
  Company Number: US-GLAXOSMITHKLINE-A0579237A

PATIENT
  Age: 49 Year
  Sex: Female

DRUGS (1)
  1. VALTREX [Suspect]
     Dosage: 3G PER DAY
     Route: 048
     Dates: start: 20051017, end: 20051018

REACTIONS (3)
  - HYPOAESTHESIA [None]
  - PARAESTHESIA [None]
  - PHARYNGEAL OEDEMA [None]
